FAERS Safety Report 12248837 (Version 1)
Quarter: 2016Q2

REPORT INFORMATION
  Report Type: Spontaneous
  Country: BR (occurrence: BR)
  Receive Date: 20160408
  Receipt Date: 20160408
  Transmission Date: 20160815
  Serious: Yes (Other)
  Sender: FDA-Public Use
  Company Number: BR-ASTRAZENECA-2016SE36004

PATIENT
  Age: 53 Year
  Sex: Female
  Weight: 63 kg

DRUGS (6)
  1. ATACAND HCT [Suspect]
     Active Substance: CANDESARTAN CILEXETIL\HYDROCHLOROTHIAZIDE
     Indication: BLOOD PRESSURE ABNORMAL
     Dosage: EVERY DAY
     Route: 048
     Dates: start: 2014, end: 2014
  2. LIPANON [Suspect]
     Active Substance: FENOFIBRATE
     Indication: BLOOD TRIGLYCERIDES ABNORMAL
     Route: 048
     Dates: start: 2008, end: 2013
  3. LIPANON [Suspect]
     Active Substance: FENOFIBRATE
     Indication: BLOOD TRIGLYCERIDES ABNORMAL
     Route: 048
     Dates: start: 2013
  4. OLCADIL [Concomitant]
     Active Substance: CLOXAZOLAM
     Indication: SEDATIVE THERAPY
     Route: 060
     Dates: start: 2006
  5. ATACAND [Suspect]
     Active Substance: CANDESARTAN CILEXETIL
     Indication: BLOOD PRESSURE ABNORMAL
     Route: 048
     Dates: start: 1998, end: 2014
  6. ATACAND [Suspect]
     Active Substance: CANDESARTAN CILEXETIL
     Indication: BLOOD PRESSURE ABNORMAL
     Route: 048
     Dates: start: 2014

REACTIONS (9)
  - Arrhythmia [Recovered/Resolved]
  - Blood urea abnormal [Recovered/Resolved]
  - Restlessness [Not Recovered/Not Resolved]
  - Blood cholesterol increased [Recovered/Resolved]
  - Off label use [Not Recovered/Not Resolved]
  - Blood creatinine abnormal [Recovered/Resolved]
  - Hepatic steatosis [Recovered/Resolved]
  - Blood triglycerides increased [Recovered/Resolved]
  - Blood pressure increased [Recovered/Resolved]

NARRATIVE: CASE EVENT DATE: 1998
